FAERS Safety Report 18274957 (Version 2)
Quarter: 2021Q1

REPORT INFORMATION
  Report Type: Spontaneous
  Country: US (occurrence: US)
  Receive Date: 20200916
  Receipt Date: 20210322
  Transmission Date: 20210419
  Serious: Yes (Other)
  Sender: FDA-Public Use
  Company Number: US-GILEAD-2020-0493792

PATIENT
  Age: 56 Year
  Sex: Male
  Weight: 86.17 kg

DRUGS (32)
  1. COMBIVIR [Concomitant]
     Active Substance: LAMIVUDINE\ZIDOVUDINE
  2. AMLODIPINE [Concomitant]
     Active Substance: AMLODIPINE BESYLATE
  3. PREDNISONE. [Concomitant]
     Active Substance: PREDNISONE
  4. FUROSEMIDE. [Concomitant]
     Active Substance: FUROSEMIDE
  5. CHLOROQUINE. [Concomitant]
     Active Substance: CHLOROQUINE
  6. TRAMADOL. [Concomitant]
     Active Substance: TRAMADOL
  7. ALLOPURINOL. [Concomitant]
     Active Substance: ALLOPURINOL
  8. LISINOPRIL. [Concomitant]
     Active Substance: LISINOPRIL
  9. SEROSTIM [Concomitant]
     Active Substance: SOMATROPIN
  10. DESCOVY [Concomitant]
     Active Substance: EMTRICITABINE\TENOFOVIR ALAFENAMIDE FUMARATE
  11. NORVIR [Concomitant]
     Active Substance: RITONAVIR
  12. VOLTAREN ACTI [Concomitant]
     Active Substance: DICLOFENAC POTASSIUM
  13. SERTRALINE [Concomitant]
     Active Substance: SERTRALINE HYDROCHLORIDE
  14. LOSARTAN. [Concomitant]
     Active Substance: LOSARTAN
  15. MITIGARE [Concomitant]
     Active Substance: COLCHICINE
  16. DIOVAN [Concomitant]
     Active Substance: VALSARTAN
  17. BIKTARVY [Concomitant]
     Active Substance: BICTEGRAVIR SODIUM\EMTRICITABINE\TENOFOVIR ALAFENAMIDE FUMARATE
  18. CRIXIVAN [Concomitant]
     Active Substance: INDINAVIR SULFATE
  19. NORTRIPTYLINE [Concomitant]
     Active Substance: NORTRIPTYLINE
  20. SILDENAFIL. [Concomitant]
     Active Substance: SILDENAFIL
  21. VIREAD [Suspect]
     Active Substance: TENOFOVIR DISOPROXIL FUMARATE
     Indication: HIV INFECTION
     Dosage: UNK
     Route: 048
     Dates: start: 2002, end: 201502
  22. GABAPENTIN. [Concomitant]
     Active Substance: GABAPENTIN
  23. EPIVIR [Concomitant]
     Active Substance: LAMIVUDINE
  24. NEXIUM I.V. [Concomitant]
     Active Substance: ESOMEPRAZOLE SODIUM
  25. DRONABINOL. [Concomitant]
     Active Substance: DRONABINOL
  26. VIREAD [Suspect]
     Active Substance: TENOFOVIR DISOPROXIL FUMARATE
     Dosage: UNK
     Route: 048
     Dates: start: 2001
  27. PRAVASTATIN. [Concomitant]
     Active Substance: PRAVASTATIN
  28. ZOLPIDEM [Concomitant]
     Active Substance: ZOLPIDEM TARTRATE
  29. SULFASALAZINE. [Concomitant]
     Active Substance: SULFASALAZINE
  30. COLCHICINE. [Concomitant]
     Active Substance: COLCHICINE
  31. TIVICAY [Concomitant]
     Active Substance: DOLUTEGRAVIR SODIUM
  32. KALETRA [Concomitant]
     Active Substance: LOPINAVIR\RITONAVIR

REACTIONS (6)
  - Chronic kidney disease [Not Recovered/Not Resolved]
  - Chronic kidney disease [Unknown]
  - Pain [Unknown]
  - Emotional distress [Unknown]
  - Hypertension [Not Recovered/Not Resolved]
  - Bone density decreased [Not Recovered/Not Resolved]

NARRATIVE: CASE EVENT DATE: 201404
